FAERS Safety Report 4983196-2 (Version None)
Quarter: 2006Q2

REPORT INFORMATION
  Report Type: 
  Country: None (occurrence: None)
  Receive Date: 20060426
  Receipt Date: 20020222
  Transmission Date: 20061013
  Serious: Yes (Death)
  Sender: FDA-Public Use
  Company Number: KR-GLAXOSMITHKLINE-B0420646A

PATIENT
  Age: 84 Year
  Sex: Male

DRUGS (2)
  1. AVANDIA [Suspect]
     Indication: DIABETES MELLITUS NON-INSULIN-DEPENDENT
     Dosage: 2MG PER DAY
     Route: 048
     Dates: start: 20010301, end: 20010904
  2. AMARYL [Concomitant]
     Indication: DIABETES MELLITUS NON-INSULIN-DEPENDENT
     Route: 048
     Dates: start: 20010107, end: 20010904

REACTIONS (1)
  - DEATH [None]
